FAERS Safety Report 5075318-2 (Version None)
Quarter: 2006Q3

REPORT INFORMATION
  Report Type: 
  Country: None (occurrence: None)
  Receive Date: 20060809
  Receipt Date: 20060731
  Transmission Date: 20061208
  Serious: Yes (Other)
  Sender: FDA-Public Use
  Company Number: US-JNJFOC-20060800089

PATIENT
  Sex: Female
  Weight: 62.14 kg

DRUGS (2)
  1. ORTHO EVRA [Suspect]
     Route: 062
  2. ORTHO EVRA [Suspect]
     Indication: CONTRACEPTION
     Route: 062

REACTIONS (7)
  - DEPRESSION [None]
  - DRUG ADMINISTRATION ERROR [None]
  - DRUG EXPOSURE DURING PREGNANCY [None]
  - EMOTIONAL DISORDER [None]
  - SUICIDAL IDEATION [None]
  - SUPPRESSED LACTATION [None]
  - UNINTENDED PREGNANCY [None]
